FAERS Safety Report 22323385 (Version 1)
Quarter: 2023Q2

REPORT INFORMATION
  Report Type: Spontaneous
  Country: US (occurrence: US)
  Receive Date: 20230516
  Receipt Date: 20230516
  Transmission Date: 20230722
  Serious: Yes (Death)
  Sender: FDA-Public Use
  Company Number: US-Fresenius Medical Care Renal Therapies Group-FMC-2305-000482

PATIENT
  Age: 46 Year
  Sex: Male
  Weight: 139 kg

DRUGS (2)
  1. DELFLEX WITH DEXTROSE 2.5% LOW MAGNESIUM LOW CALCIUM [Suspect]
     Active Substance: CALCIUM CHLORIDE\DEXTROSE\MAGNESIUM CHLORIDE\SODIUM CHLORIDE\SODIUM LACTATE
     Indication: End stage renal disease
     Dosage: AT 2500 ML FOR 5 CYCLES WITH A LAST FILL OF 1750 ML AND NO DAYTIME EXCHANGE, SINCE 20/APR/2020
     Route: 033
  2. DELFLEX WITH DEXTROSE 4.25% LOW MAGNESIUM LOW CALCIUM [Suspect]
     Active Substance: CALCIUM CHLORIDE\DEXTROSE\MAGNESIUM CHLORIDE\SODIUM CHLORIDE\SODIUM LACTATE
     Indication: End stage renal disease
     Dosage: AT 2500 ML FOR 5 CYCLES WITH A LAST FILL OF 1750 ML AND NO DAYTIME EXCHANGE, SINCE 20/APR/2020
     Route: 033

REACTIONS (1)
  - Death [Fatal]
